FAERS Safety Report 6508336-5 (Version None)
Quarter: 2009Q4

REPORT INFORMATION
  Report Type: 
  Country: None (occurrence: None)
  Receive Date: 20091221
  Receipt Date: 20090303
  Transmission Date: 20100525
  Serious: No
  Sender: FDA-Public Use
  Company Number: US-ASTRAZENECA-2004UW14864

PATIENT
  Age: 71 Year
  Sex: Male
  Weight: 88.5 kg

DRUGS (7)
  1. CRESTOR [Suspect]
     Indication: BLOOD CHOLESTEROL INCREASED
     Route: 048
  2. PROTONIX [Concomitant]
  3. TUMS [Concomitant]
  4. GLUCOTROL [Concomitant]
     Indication: DIABETES MELLITUS
  5. ATACAND [Concomitant]
  6. CARDIZEM [Concomitant]
     Indication: HYPERTENSION
  7. STARLIX [Concomitant]
     Indication: DIABETES MELLITUS

REACTIONS (5)
  - ARTHRALGIA [None]
  - ASTHENIA [None]
  - DYSPEPSIA [None]
  - HEADACHE [None]
  - MEMORY IMPAIRMENT [None]
